FAERS Safety Report 19074301 (Version 2)
Quarter: 2021Q2

REPORT INFORMATION
  Report Type: Spontaneous
  Country: FR (occurrence: FR)
  Receive Date: 20210330
  Receipt Date: 20210402
  Transmission Date: 20210717
  Serious: Yes (Other)
  Sender: FDA-Public Use
  Company Number: FR-ORGANON-O2103FRA003135

PATIENT
  Sex: Male

DRUGS (1)
  1. ZOCOR [Suspect]
     Active Substance: SIMVASTATIN
     Dosage: UNK, STRENGTH: 10 MG
     Route: 048

REACTIONS (3)
  - Dysphagia [Unknown]
  - Wrong technique in product usage process [Unknown]
  - Neoplasm malignant [Unknown]
